FAERS Safety Report 4276653-8 (Version None)
Quarter: 2004Q1

REPORT INFORMATION
  Report Type: 
  Country: None (occurrence: None)
  Receive Date: 20040120
  Receipt Date: 20040107
  Transmission Date: 20041129
  Serious: Yes (Life-Threatening, Hospitalization, Other)
  Sender: FDA-Public Use
  Company Number: A-US2003-03940

PATIENT
  Age: 75 Year
  Sex: Male
  Weight: 79.4 kg

DRUGS (1)
  1. TRACLEER [Suspect]
     Dosage: 62.5 MG, BID, ORAL
     Route: 048
     Dates: start: 20031007, end: 20031010

REACTIONS (8)
  - CEREBROVASCULAR ACCIDENT [None]
  - DISEASE PROGRESSION [None]
  - DYSPNOEA EXERTIONAL [None]
  - FATIGUE [None]
  - HYPOXIA [None]
  - PNEUMONIA ASPIRATION [None]
  - PULMONARY HYPERTENSION [None]
  - RESPIRATORY FAILURE [None]
